FAERS Safety Report 11252931 (Version 1)
Quarter: 2015Q3

REPORT INFORMATION
  Report Type: Spontaneous
  Country: US (occurrence: None)
  Receive Date: 20150707
  Receipt Date: 20150707
  Transmission Date: 20151125
  Serious: Yes (Other)
  Sender: FDA-Public Use
  Company Number: 1224701-2015-00002

PATIENT
  Age: 60 Year
  Sex: Female

DRUGS (25)
  1. INSULIN [Concomitant]
     Active Substance: INSULIN NOS
  2. REVATIO [Concomitant]
     Active Substance: SILDENAFIL CITRATE
  3. CHOLECALCIFEROL [Concomitant]
     Active Substance: CHOLECALCIFEROL
  4. FLEXERIL [Concomitant]
     Active Substance: CYCLOBENZAPRINE HYDROCHLORIDE
  5. IMODIUM [Concomitant]
     Active Substance: LOPERAMIDE HYDROCHLORIDE
  6. HUMALOG [Concomitant]
     Active Substance: INSULIN LISPRO
  7. PREVACID [Concomitant]
     Active Substance: LANSOPRAZOLE
  8. SENNA-S [Concomitant]
     Active Substance: DOCUSATE SODIUM\SENNOSIDES
  9. PROVENTIL [Concomitant]
     Active Substance: ALBUTEROL
  10. TOPROL XL [Concomitant]
     Active Substance: METOPROLOL SUCCINATE
  11. FOLIC ACID  (VIT B6/VIT B12) [Concomitant]
  12. APRESOLINE HYDROCHLORIDE [Concomitant]
     Active Substance: HYDRALAZINE HYDROCHLORIDE
  13. COUMADIN [Concomitant]
     Active Substance: WARFARIN SODIUM
  14. TYLENOL [Concomitant]
     Active Substance: ACETAMINOPHEN
  15. ZYLOPRIM [Concomitant]
     Active Substance: ALLOPURINOL
  16. ASPIRIN. [Concomitant]
     Active Substance: ASPIRIN
  17. B COMPLEX AND C NO. 20/FOLIC ACID [Concomitant]
  18. CALCIUM CARBONATE. [Concomitant]
     Active Substance: CALCIUM CARBONATE
  19. METHYL (B12/L-MEFOLATE/B6 PHOS) [Concomitant]
  20. ZOFRAN [Concomitant]
     Active Substance: ONDANSETRON HYDROCHLORIDE
  21. PAXIL [Concomitant]
     Active Substance: PAROXETINE HYDROCHLORIDE
  22. CRESTOR [Concomitant]
     Active Substance: ROSUVASTATIN CALCIUM
  23. FLONASE [Concomitant]
     Active Substance: FLUTICASONE PROPIONATE
  24. PHOSLYRA [Suspect]
     Active Substance: CALCIUM ACETATE
  25. DILAUDID [Concomitant]
     Active Substance: HYDROMORPHONE HYDROCHLORIDE

REACTIONS (1)
  - Drug hypersensitivity [None]

NARRATIVE: CASE EVENT DATE: 20150409
